FAERS Safety Report 19087155 (Version 1)
Quarter: 2021Q2

REPORT INFORMATION
  Report Type: Spontaneous
  Country: US (occurrence: US)
  Receive Date: 20210402
  Receipt Date: 20210402
  Transmission Date: 20210717
  Serious: Yes (Other)
  Sender: FDA-Public Use
  Company Number: US-AMNEAL PHARMACEUTICALS-2021-AMRX-00171

PATIENT
  Age: 14 Year
  Sex: Male
  Weight: 74 kg

DRUGS (5)
  1. SABRIL [Concomitant]
     Active Substance: VIGABATRIN
     Indication: PRODUCT USED FOR UNKNOWN INDICATION
     Dosage: UNK
     Route: 065
  2. VIGABATRIN. [Suspect]
     Active Substance: VIGABATRIN
     Dosage: 30 MILLILITER, BID
     Route: 048
     Dates: start: 20210116, end: 20210116
  3. VIGABATRIN. [Suspect]
     Active Substance: VIGABATRIN
     Indication: INFANTILE SPASMS
     Dosage: 2000 MILLIGRAM, BID
     Route: 048
     Dates: end: 20210115
  4. CIPRO [Concomitant]
     Active Substance: CIPROFLOXACIN HYDROCHLORIDE
     Indication: PRODUCT USED FOR UNKNOWN INDICATION
     Dosage: UNK
     Route: 065
  5. VIGABATRIN. [Suspect]
     Active Substance: VIGABATRIN
     Dosage: 20 MILLILITER, BID
     Route: 048
     Dates: start: 20210117, end: 20210117

REACTIONS (3)
  - Therapy cessation [Unknown]
  - Intentional product use issue [Unknown]
  - Seizure [Unknown]

NARRATIVE: CASE EVENT DATE: 20210115
